FAERS Safety Report 11029765 (Version 1)
Quarter: 2015Q2

REPORT INFORMATION
  Report Type: Spontaneous
  Country: US (occurrence: None)
  Receive Date: 20150413
  Receipt Date: 20150413
  Transmission Date: 20150821
  Serious: Yes (Other)
  Sender: FDA-Public Use
  Company Number: None

PATIENT
  Age: 83 Year
  Sex: Male
  Weight: 68.04 kg

DRUGS (5)
  1. ADVIL [Suspect]
     Active Substance: IBUPROFEN
     Indication: ARTHRITIS
     Dosage: TAKEN BY MOUTH
     Dates: start: 20150411, end: 20150412
  2. METAPROLOL [Concomitant]
  3. LIPITOR [Concomitant]
     Active Substance: ATORVASTATIN CALCIUM
  4. COENZYME [Concomitant]
     Active Substance: UBIDECARENONE
  5. TRIAMTERENE/HCT [Concomitant]

REACTIONS (2)
  - Urticaria [None]
  - Headache [None]

NARRATIVE: CASE EVENT DATE: 20150412
